FAERS Safety Report 17562449 (Version 1)
Quarter: 2020Q1

REPORT INFORMATION
  Report Type: Spontaneous
  Country: NL (occurrence: FR)
  Receive Date: 20200319
  Receipt Date: 20200319
  Transmission Date: 20200409
  Serious: Yes (Hospitalization)
  Sender: FDA-Public Use
  Company Number: FR-FRESENIUS KABI-FK202002698

PATIENT
  Age: 43 Year
  Sex: Female

DRUGS (3)
  1. SUFENTANIL [Suspect]
     Active Substance: SUFENTANIL
     Indication: GENERAL ANAESTHESIA
     Route: 065
     Dates: start: 20190707, end: 20190707
  2. PROPOFOL (MANUFACTURER UNKNOWN) [Suspect]
     Active Substance: PROPOFOL
     Indication: GENERAL ANAESTHESIA
     Route: 065
     Dates: start: 20190707, end: 20190707
  3. MIVACURIUM CHLORIDE. [Suspect]
     Active Substance: MIVACURIUM CHLORIDE
     Indication: GENERAL ANAESTHESIA
     Route: 065
     Dates: start: 20190707, end: 20190707

REACTIONS (1)
  - Anaphylactic reaction [Recovered/Resolved]

NARRATIVE: CASE EVENT DATE: 20190707
